FAERS Safety Report 13571361 (Version 1)
Quarter: 2017Q2

REPORT INFORMATION
  Report Type: Spontaneous
  Country: US (occurrence: US)
  Receive Date: 20170522
  Receipt Date: 20170522
  Transmission Date: 20170830
  Serious: No
  Sender: FDA-Public Use
  Company Number: None

PATIENT
  Age: 36 Year
  Sex: Male

DRUGS (2)
  1. RANITIDINE TABS 150MG [Suspect]
     Active Substance: RANITIDINE
     Indication: OESOPHAGEAL MOTILITY DISORDER
     Route: 048
  2. RANITIDINE TABS 150MG [Suspect]
     Active Substance: RANITIDINE
     Indication: GASTROOESOPHAGEAL REFLUX DISEASE
     Route: 048

REACTIONS (3)
  - Hyperchlorhydria [None]
  - Product quality issue [None]
  - Treatment failure [None]

NARRATIVE: CASE EVENT DATE: 20170507
